FAERS Safety Report 9448670 (Version 1)
Quarter: 2013Q3

REPORT INFORMATION
  Report Type: Spontaneous
  Country: US (occurrence: US)
  Receive Date: 20130808
  Receipt Date: 20130808
  Transmission Date: 20140515
  Serious: No
  Sender: FDA-Public Use
  Company Number: US-BAXTER-2013BAX027943

PATIENT
  Age: 55 Year
  Sex: Female

DRUGS (4)
  1. DIANEAL PD2 [Suspect]
     Indication: PERITONEAL DIALYSIS
     Route: 033
     Dates: start: 20130708
  2. DIANEAL PD2 [Suspect]
     Route: 033
     Dates: start: 20130722
  3. DIANEAL PD2 [Suspect]
     Indication: PERITONEAL DIALYSIS
     Route: 033
     Dates: start: 20130708
  4. DIANEAL PD2 [Suspect]
     Route: 033
     Dates: start: 20130722

REACTIONS (3)
  - Peritoneal dialysis complication [Recovering/Resolving]
  - Pneumoperitoneum [Recovering/Resolving]
  - Abdominal pain [Recovering/Resolving]
